FAERS Safety Report 16805592 (Version 2)
Quarter: 2019Q3

REPORT INFORMATION
  Report Type: Spontaneous
  Country: US (occurrence: US)
  Receive Date: 20190913
  Receipt Date: 20190913
  Transmission Date: 20191005
  Serious: Yes (Hospitalization, Other)
  Sender: FDA-Public Use
  Company Number: US-PFIZER INC-2019381213

PATIENT
  Age: 32 Year
  Sex: Female
  Weight: 54.4 kg

DRUGS (3)
  1. BUPIVACAINE HCL [Suspect]
     Active Substance: BUPIVACAINE HYDROCHLORIDE
     Indication: LOCAL ANAESTHESIA
     Dosage: 5 ML, (INJECTED AROUND THE RIGHT GREATER OCCIPITAL NERVE)
  2. BUPIVACAINE HCL [Suspect]
     Active Substance: BUPIVACAINE HYDROCHLORIDE
     Indication: NERVE BLOCK
     Dosage: 4 ML, UNK (AROUND THE LEFT GREATER OCCIPITAL NERVE NEAR THE VP SHUNT TUBING)
  3. BUPIVACAINE HCL [Suspect]
     Active Substance: BUPIVACAINE HYDROCHLORIDE
     Indication: HEADACHE

REACTIONS (2)
  - Incorrect route of product administration [Recovered/Resolved]
  - Neurotoxicity [Recovered/Resolved]
